FAERS Safety Report 11342724 (Version 2)
Quarter: 2015Q3

REPORT INFORMATION
  Report Type: Spontaneous
  Country: US (occurrence: US)
  Receive Date: 20150805
  Receipt Date: 20150818
  Transmission Date: 20151125
  Serious: No
  Sender: FDA-Public Use
  Company Number: US-SHIRE-US201509789

PATIENT
  Age: 58 Year
  Sex: Male
  Weight: 100.14 kg

DRUGS (3)
  1. VYVANSE [Suspect]
     Active Substance: LISDEXAMFETAMINE DIMESYLATE
     Indication: ATTENTION DEFICIT/HYPERACTIVITY DISORDER
     Dosage: 40 MG, 1X/DAY:QD (QAM)
     Route: 048
     Dates: start: 20150327, end: 20150611
  2. VYVANSE [Suspect]
     Active Substance: LISDEXAMFETAMINE DIMESYLATE
     Dosage: 30 MG, 1X/DAY:QD (QAM)
     Route: 048
     Dates: start: 201508
  3. CLONIDINE. [Concomitant]
     Active Substance: CLONIDINE
     Indication: INSOMNIA
     Dosage: (0.1-0.2 MG), 1X/DAY:QD (QHS)
     Route: 048
     Dates: start: 20150327

REACTIONS (2)
  - Bruxism [Recovering/Resolving]
  - Muscle tightness [Recovered/Resolved]

NARRATIVE: CASE EVENT DATE: 20150702
